FAERS Safety Report 9457022 (Version 4)
Quarter: 2013Q4

REPORT INFORMATION
  Report Type: Spontaneous
  Country: US (occurrence: US)
  Receive Date: 20130814
  Receipt Date: 20131210
  Transmission Date: 20140711
  Serious: Yes (Death, Hospitalization, Other)
  Sender: FDA-Public Use
  Company Number: US-JNJFOC-20130804607

PATIENT
  Age: 32 Year
  Sex: Female
  Weight: 67.13 kg

DRUGS (16)
  1. BENADRYL UNSPECIFIED [Suspect]
     Route: 042
  2. BENADRYL UNSPECIFIED [Suspect]
     Indication: PREMEDICATION
     Route: 042
     Dates: end: 20130502
  3. DILAUDID [Suspect]
     Indication: PRODUCT USED FOR UNKNOWN INDICATION
     Dosage: 2 TO 4 MG (UNKNOWN 1 IN 2 HR)
     Route: 048
  4. DILAUDID [Suspect]
     Indication: PRODUCT USED FOR UNKNOWN INDICATION
     Route: 042
  5. PHENERGAN [Suspect]
     Indication: PREMEDICATION
     Route: 065
  6. CINRYZE [Suspect]
     Indication: PROPHYLAXIS
     Dosage: 500 UNITS
     Route: 042
  7. ACTIQ [Suspect]
     Indication: PAIN MANAGEMENT
     Route: 048
  8. ACTIQ [Suspect]
     Indication: PAIN MANAGEMENT
     Route: 048
  9. ACTIQ [Suspect]
     Indication: ABDOMINAL PAIN
     Route: 048
  10. ACTIQ [Suspect]
     Indication: ABDOMINAL PAIN
     Route: 048
  11. COLACE [Concomitant]
     Indication: CONSTIPATION
     Route: 048
  12. KLONOPIN [Concomitant]
     Indication: SLEEP DISORDER
     Dosage: AS REQUIRED
     Route: 048
  13. SYNTHROID [Concomitant]
     Indication: HYPOTHYROIDISM
     Route: 065
  14. FIRAZYR [Concomitant]
     Indication: HEREDITARY ANGIOEDEMA
     Route: 065
  15. AMBIEN [Concomitant]
     Indication: SLEEP DISORDER
     Dosage: AS REQUIRED
     Route: 065
  16. COMPLEMENT C1 ESTERASE INHIBITOR [Concomitant]
     Indication: PROPHYLAXIS
     Dosage: 1500 UNITS
     Route: 065
     Dates: start: 201303

REACTIONS (8)
  - Completed suicide [Fatal]
  - Hereditary angioedema [Recovered/Resolved]
  - Tooth abscess [Recovered/Resolved]
  - Off label use [Unknown]
  - Overdose [Fatal]
  - Drug tolerance increased [Unknown]
  - Drug prescribing error [Unknown]
  - Incorrect route of drug administration [Unknown]
